FAERS Safety Report 13961259 (Version 1)
Quarter: 2017Q3

REPORT INFORMATION
  Report Type: Spontaneous
  Country: AR (occurrence: AR)
  Receive Date: 20170912
  Receipt Date: 20170912
  Transmission Date: 20171128
  Serious: Yes (Other)
  Sender: FDA-Public Use
  Company Number: AR-BAYER-2017-168719

PATIENT
  Age: 72 Year
  Sex: Male

DRUGS (2)
  1. NEXAVAR [Suspect]
     Active Substance: SORAFENIB
     Indication: HEPATOCELLULAR CARCINOMA
     Dosage: DAILY DOSE 600 MG
  2. NEXAVAR [Suspect]
     Active Substance: SORAFENIB
     Indication: HEPATOCELLULAR CARCINOMA
     Dosage: 800 MG, QD
     Dates: start: 201610, end: 201704

REACTIONS (9)
  - Mesenteric vein thrombosis [Unknown]
  - Drug intolerance [Unknown]
  - Liver disorder [Unknown]
  - Abdominal distension [Unknown]
  - Diarrhoea [Unknown]
  - Performance status decreased [Unknown]
  - Ascites [Unknown]
  - Portal vein thrombosis [Unknown]
  - Anaemia [Unknown]

NARRATIVE: CASE EVENT DATE: 2017
